FAERS Safety Report 4348183-6 (Version None)
Quarter: 2004Q2

REPORT INFORMATION
  Report Type: 
  Country: None (occurrence: None)
  Receive Date: 20040422
  Receipt Date: 20040414
  Transmission Date: 20050107
  Serious: Yes (Hospitalization)
  Sender: FDA-Public Use
  Company Number: 2004209374US

PATIENT
  Age: 67 Year
  Sex: Male

DRUGS (4)
  1. CELEBREX [Suspect]
     Indication: ARTHRALGIA
     Dosage: 200 MG, QD
     Dates: start: 19990101
  2. TOPROL-XL [Concomitant]
  3. ALTACE [Concomitant]
  4. ACETYLSALICYLIC ACID SRT [Concomitant]

REACTIONS (2)
  - MYOCARDIAL INFARCTION [None]
  - THROMBOSIS [None]
